FAERS Safety Report 13642570 (Version 1)
Quarter: 2017Q2

REPORT INFORMATION
  Report Type: Spontaneous
  Country: US (occurrence: US)
  Receive Date: 20170612
  Receipt Date: 20170612
  Transmission Date: 20170830
  Serious: Yes (Disabling)
  Sender: FDA-Public Use
  Company Number: None

PATIENT
  Age: 24 Year
  Sex: Female
  Weight: 60 kg

DRUGS (1)
  1. MIRENA [Suspect]
     Active Substance: LEVONORGESTREL

REACTIONS (9)
  - Anxiety [None]
  - Metrorrhagia [None]
  - Muscle spasms [None]
  - Food intolerance [None]
  - Alcohol intolerance [None]
  - Depression [None]
  - Oligomenorrhoea [None]
  - Ovarian cyst [None]
  - Abdominal distension [None]

NARRATIVE: CASE EVENT DATE: 20170612
